FAERS Safety Report 8785032 (Version 1)
Quarter: 2012Q4

REPORT INFORMATION
  Report Type: 
  Country: US (occurrence: US)
  Receive Date: 20120914
  Receipt Date: 20120914
  Transmission Date: 20130627
  Serious: No
  Sender: FDA-Public Use
  Company Number: US-ASTRAZENECA-2012SE69124

PATIENT
  Age: 68 Year
  Sex: Female

DRUGS (1)
  1. PULMICORT RESPULES [Suspect]
     Route: 055

REACTIONS (4)
  - Speech disorder [Unknown]
  - Tremor [Unknown]
  - Dysgraphia [Unknown]
  - Off label use [Unknown]
